FAERS Safety Report 7978879-6 (Version None)
Quarter: 2011Q4

REPORT INFORMATION
  Report Type: 
  Country: None (occurrence: None)
  Receive Date: 20111214
  Receipt Date: 20111207
  Transmission Date: 20120403
  Serious: Yes (Other)
  Sender: FDA-Public Use
  Company Number: US-RB-031031-11

PATIENT
  Age: 50 Year
  Sex: Female

DRUGS (2)
  1. MUCINEX DM [Suspect]
     Route: 048
     Dates: start: 20111128
  2. MUCINEX DM [Suspect]
     Indication: COUGH
     Route: 048
     Dates: start: 20111204

REACTIONS (1)
  - BLOOD PRESSURE INCREASED [None]
